FAERS Safety Report 5295370-9 (Version None)
Quarter: 2007Q2

REPORT INFORMATION
  Report Type: 
  Country: None (occurrence: None)
  Receive Date: 20070405
  Receipt Date: 20070327
  Transmission Date: 20071010
  Serious: Yes (Hospitalization)
  Sender: FDA-Public Use
  Company Number: 238971

PATIENT
  Age: 71 Year
  Sex: Female
  Weight: 83 kg

DRUGS (3)
  1. RITUXAN [Suspect]
     Indication: B-CELL LYMPHOMA
     Dosage: 375 MG/M2, 1/WEEK, INTRAVENOUS
     Route: 042
     Dates: start: 20070315
  2. TYLENOL (CAPLET) [Concomitant]
  3. BENADRYL [Concomitant]

REACTIONS (2)
  - HEPATIC ENZYME INCREASED [None]
  - SMALL INTESTINAL OBSTRUCTION [None]
